FAERS Safety Report 20034826 (Version 1)
Quarter: 2021Q4

REPORT INFORMATION
  Report Type: Spontaneous
  Country: JP (occurrence: JP)
  Receive Date: 20211104
  Receipt Date: 20211104
  Transmission Date: 20220303
  Serious: Yes (Other)
  Sender: FDA-Public Use
  Company Number: JP-PFIZER INC-202101464161

PATIENT

DRUGS (1)
  1. CELECOXIB [Suspect]
     Active Substance: CELECOXIB
     Dosage: UNK

REACTIONS (3)
  - Depressed level of consciousness [Unknown]
  - Haemorrhagic diathesis [Unknown]
  - Headache [Unknown]
